FAERS Safety Report 8426037-3 (Version None)
Quarter: 2012Q2

REPORT INFORMATION
  Report Type: 
  Country: None (occurrence: None)
  Receive Date: 20120611
  Receipt Date: 20120530
  Transmission Date: 20120825
  Serious: Yes (Other)
  Sender: FDA-Public Use
  Company Number: US-JNJFOC-20120409422

PATIENT
  Sex: Female
  Weight: 64.9 kg

DRUGS (8)
  1. REMICADE [Suspect]
     Indication: CROHN'S DISEASE
     Dosage: 4-5 INFUSIONS RECENTLY (DATES UNSPECIFIED)
     Route: 042
  2. BENADRYL [Concomitant]
     Indication: PREMEDICATION
     Route: 048
     Dates: start: 20120223
  3. PREDNISONE TAB [Concomitant]
     Route: 048
     Dates: start: 20120222
  4. REMICADE [Suspect]
     Route: 042
     Dates: start: 19980206
  5. SOLU-CORTEF [Concomitant]
     Indication: PREMEDICATION
     Route: 042
     Dates: start: 20120223
  6. REMICADE [Suspect]
     Route: 042
     Dates: start: 20120101
  7. REMICADE [Suspect]
     Route: 042
     Dates: start: 20120223
  8. ENTOCORT EC [Concomitant]

REACTIONS (3)
  - HYPOAESTHESIA [None]
  - VISUAL IMPAIRMENT [None]
  - VITREOUS FLOATERS [None]
